FAERS Safety Report 9775729 (Version 2)
Quarter: 2014Q1

REPORT INFORMATION
  Report Type: Spontaneous
  Country: NO (occurrence: NO)
  Receive Date: 20131220
  Receipt Date: 20140106
  Transmission Date: 20141002
  Serious: Yes (Other)
  Sender: FDA-Public Use
  Company Number: NO-ELI_LILLY_AND_COMPANY-NO201312004552

PATIENT
  Age: 76 Year
  Sex: Female

DRUGS (12)
  1. CYMBALTA [Suspect]
     Indication: PRODUCT USED FOR UNKNOWN INDICATION
     Dosage: UNK
     Route: 065
     Dates: start: 20100611, end: 201107
  2. ZOLOFT /SCH/ [Suspect]
     Indication: ARTHRALGIA
     Dosage: 50 MG, UNKNOWN
     Route: 048
     Dates: start: 2006
  3. ZOLOFT /SCH/ [Suspect]
     Indication: DEPRESSION
     Dosage: 25 MG, UNKNOWN
     Route: 048
  4. ZOLOFT /SCH/ [Suspect]
     Dosage: 50 MG 5 DAYS A WEEK
     Route: 048
     Dates: start: 201304
  5. SOBRIL [Suspect]
     Indication: RESTLESSNESS
     Dosage: 15 MG, EACH EVENING
     Route: 065
     Dates: start: 20100611, end: 201207
  6. SOBRIL [Suspect]
     Indication: ARTHRALGIA
  7. SOBRIL [Suspect]
     Indication: ANXIETY
  8. LEVAXIN [Concomitant]
     Indication: HYPOTHYROIDISM
     Dosage: 100 MG, QD
  9. LEVAXIN [Concomitant]
     Indication: HYPERTENSION
     Dosage: 5 MG, QD
  10. CALCIUM [Concomitant]
  11. PREDNISOLON [Concomitant]
     Indication: RHEUMATOID ARTHRITIS
     Dosage: 2.5 MG, QD
  12. EMCONCOR                                /BEL/ [Concomitant]
     Indication: HYPERTENSION
     Dosage: 5 MG, QD

REACTIONS (16)
  - Duodenitis [Unknown]
  - Weight increased [Unknown]
  - Gastric disorder [Unknown]
  - Tremor [Not Recovered/Not Resolved]
  - Oedema [Unknown]
  - Cystitis [Unknown]
  - Muscle contractions involuntary [Unknown]
  - Tinnitus [Unknown]
  - Rash [Unknown]
  - Urinary retention [Unknown]
  - Feeling abnormal [Unknown]
  - Nausea [Unknown]
  - Constipation [Unknown]
  - Hypertension [Unknown]
  - Wound [Unknown]
  - Restlessness [Unknown]
